FAERS Safety Report 10009861 (Version 2)
Quarter: 2014Q1

REPORT INFORMATION
  Report Type: Spontaneous
  Country: US (occurrence: US)
  Receive Date: 20140312
  Receipt Date: 20140312
  Transmission Date: 20141002
  Serious: No
  Sender: FDA-Public Use
  Company Number: US-INCYTE CORPORATION-2012IN002636

PATIENT
  Age: 77 Year
  Sex: Female
  Weight: 68.03 kg

DRUGS (6)
  1. JAKAFI [Suspect]
     Dosage: 10 MG, BID
     Route: 048
     Dates: start: 20120514
  2. JAKAFI [Suspect]
     Dosage: NOT SPECIFIED (DECREASED)
     Route: 048
  3. JAKAFI [Suspect]
     Dosage: NOT SPECIFIED (INCREASED)
     Route: 048
  4. HYDREA [Concomitant]
  5. IRON [Concomitant]
  6. DOXYCILLIN [Concomitant]

REACTIONS (2)
  - Increased appetite [Recovered/Resolved]
  - Weight increased [Recovered/Resolved]
